FAERS Safety Report 5167557-7 (Version None)
Quarter: 2006Q4

REPORT INFORMATION
  Report Type: 
  Country: None (occurrence: None)
  Receive Date: 20060830
  Receipt Date: 20060622
  Transmission Date: 20070319
  Serious: No
  Sender: FDA-Public Use
  Company Number: 225849

PATIENT
  Age: 44 Year
  Sex: Male
  Weight: 109.8 kg

DRUGS (8)
  1. XOLAIR [Suspect]
     Indication: ASTHMA
     Dosage: 300 MG, Q4W, SUBCUTANEOUS
     Route: 058
     Dates: start: 20040503
  2. COMBIVENT [Concomitant]
  3. THEOPHYLLINE [Concomitant]
  4. SINGULAIR [Concomitant]
  5. FLOVENT [Concomitant]
  6. FORADIL [Concomitant]
  7. BETAMETHASONE DIPROPIONATE (BETAMETHASONE DIPROPIONATE) [Concomitant]
  8. PROVENTIL (ALBUTEROL/ALBUTEROL SULFATE) [Concomitant]

REACTIONS (1)
  - ALOPECIA [None]
